FAERS Safety Report 20174523 (Version 1)
Quarter: 2021Q4

REPORT INFORMATION
  Report Type: Spontaneous
  Country: US (occurrence: US)
  Receive Date: 20211213
  Receipt Date: 20211213
  Transmission Date: 20220303
  Serious: Yes (Death, Hospitalization)
  Sender: FDA-Public Use
  Company Number: US-JNJFOC-20211203620

PATIENT
  Age: 45 Year
  Sex: Female

DRUGS (5)
  1. ACETAMINOPHEN [Suspect]
     Active Substance: ACETAMINOPHEN
     Indication: Suicide attempt
     Dosage: ACETAMINOPHEN 500 MG AT A TOTAL DOSE OF ACETAMINOPHEN 26000 MG
     Route: 048
     Dates: start: 20030109, end: 20030109
  2. TOPAMAX [Concomitant]
     Active Substance: TOPIRAMATE
     Indication: Product used for unknown indication
     Route: 065
  3. TRAZODONE [Concomitant]
     Active Substance: TRAZODONE HYDROCHLORIDE
     Indication: Product used for unknown indication
     Route: 065
  4. DEPAKOTE [Concomitant]
     Active Substance: DIVALPROEX SODIUM
     Indication: Product used for unknown indication
     Route: 065
  5. ZYPREXA [Concomitant]
     Active Substance: OLANZAPINE
     Indication: Product used for unknown indication
     Route: 065
     Dates: end: 20030109

REACTIONS (13)
  - Completed suicide [Fatal]
  - Brain herniation [Fatal]
  - Haemorrhage intracranial [Fatal]
  - Brain death [Fatal]
  - Atelectasis [Fatal]
  - Pneumonia [Fatal]
  - Staphylococcal infection [Recovered/Resolved]
  - Alpha 1 foetoprotein increased [Fatal]
  - Acute hepatic failure [Fatal]
  - Acute kidney injury [Fatal]
  - Intentional overdose [Fatal]
  - Gastrointestinal haemorrhage [Fatal]
  - Fungal infection [Recovered/Resolved]
